FAERS Safety Report 6109341-3 (Version None)
Quarter: 2009Q1

REPORT INFORMATION
  Report Type: 
  Country: None (occurrence: None)
  Receive Date: 20090306
  Receipt Date: 20090306
  Transmission Date: 20090719
  Serious: Yes (Other)
  Sender: FDA-Public Use
  Company Number: None

PATIENT
  Age: 54 Year
  Sex: Female
  Weight: 95.2554 kg

DRUGS (4)
  1. ABILIFY [Suspect]
     Indication: BIPOLAR DISORDER
     Dosage: 10 MG QD PO OFF/ ON FOR 1 YEAR OFF/ ON FOR 2 YEARS
     Route: 048
     Dates: start: 20060403, end: 20061101
  2. ABILIFY [Suspect]
     Indication: MAJOR DEPRESSION
     Dosage: 10 MG QD PO OFF/ ON FOR 1 YEAR OFF/ ON FOR 2 YEARS
     Route: 048
     Dates: start: 20060403, end: 20061101
  3. ABILIFY [Suspect]
     Indication: BIPOLAR DISORDER
     Dosage: 10 MG QD PO OFF/ ON FOR 1 YEAR OFF/ ON FOR 2 YEARS
     Route: 048
     Dates: start: 20070326, end: 20090305
  4. ABILIFY [Suspect]
     Indication: MAJOR DEPRESSION
     Dosage: 10 MG QD PO OFF/ ON FOR 1 YEAR OFF/ ON FOR 2 YEARS
     Route: 048
     Dates: start: 20070326, end: 20090305

REACTIONS (1)
  - DYSKINESIA [None]
